FAERS Safety Report 9771747 (Version 1)
Quarter: 2013Q4

REPORT INFORMATION
  Report Type: Spontaneous
  Country: CO (occurrence: CO)
  Receive Date: 20131219
  Receipt Date: 20131219
  Transmission Date: 20140711
  Serious: Yes (Hospitalization)
  Sender: FDA-Public Use
  Company Number: CO-AMGEN-COLSP2013088833

PATIENT
  Age: 60 Year
  Sex: Female

DRUGS (6)
  1. ENBREL [Suspect]
     Indication: RHEUMATOID ARTHRITIS
     Dosage: 50 MG, WEEKLY
     Route: 058
     Dates: start: 2009
  2. LOSARTAN [Concomitant]
     Indication: HYPERTENSION
     Dosage: UNK UNK, QOD
     Route: 048
     Dates: start: 1993
  3. AMLODIPINE [Concomitant]
     Indication: HYPERTENSION
     Dosage: UNK UNK, QOD
     Route: 048
     Dates: start: 1993
  4. INSULIN [Concomitant]
     Indication: DIABETES MELLITUS
     Dosage: 50 IU IN THE MORNING AND 45 IU AT NIGH, 1X/DAY
     Route: 058
     Dates: start: 2000
  5. PREDNISOLON                        /00016201/ [Concomitant]
     Indication: RHEUMATOID ARTHRITIS
     Dosage: 5 MG, 1X/DAY
     Route: 048
     Dates: start: 2001
  6. FUROSEMID                          /00032601/ [Concomitant]
     Indication: RENAL IMPAIRMENT
     Dosage: UNK UNK, QOD
     Route: 048
     Dates: start: 2008

REACTIONS (2)
  - Thrombophlebitis [Not Recovered/Not Resolved]
  - Drug ineffective [Not Recovered/Not Resolved]
